FAERS Safety Report 20297415 (Version 13)
Quarter: 2023Q2

REPORT INFORMATION
  Report Type: Spontaneous
  Country: CA (occurrence: CA)
  Receive Date: 20220105
  Receipt Date: 20230607
  Transmission Date: 20230721
  Serious: Yes (Hospitalization, Other)
  Sender: FDA-Public Use
  Company Number: CA-CELLTRION INC.-2021CA014162

PATIENT

DRUGS (21)
  1. INFLECTRA [Suspect]
     Active Substance: INFLIXIMAB-DYYB
     Indication: Crohn^s disease
     Dosage: 400 MG, Q 0,2 AND 6 WEEKS, THEN EVERY 8 WEEKS.
     Route: 042
     Dates: start: 20210629, end: 20221003
  2. INFLECTRA [Suspect]
     Active Substance: INFLIXIMAB-DYYB
     Dosage: 400 MG, Q 0,2 AND 6 WEEKS, THEN EVERY 8 WEEKS.
     Route: 042
     Dates: start: 20210715
  3. INFLECTRA [Suspect]
     Active Substance: INFLIXIMAB-DYYB
     Dosage: 400 MG, Q 0,2 AND 6 WEEKS, THEN EVERY 8 WEEKS.
     Route: 042
     Dates: start: 20210812
  4. INFLECTRA [Suspect]
     Active Substance: INFLIXIMAB-DYYB
     Dosage: 400 MG, Q 0,2 AND 6 WEEKS, THEN EVERY 8 WEEKS.
     Route: 042
     Dates: start: 20211007
  5. INFLECTRA [Suspect]
     Active Substance: INFLIXIMAB-DYYB
     Dosage: 400 MG, Q 0,2 AND 6 WEEKS, THEN EVERY 8 WEEKS.
     Route: 042
     Dates: start: 20211202
  6. INFLECTRA [Suspect]
     Active Substance: INFLIXIMAB-DYYB
     Dosage: 400 MG, Q 0,2 AND 6 WEEKS, THEN EVERY 8 WEEKS.
     Route: 042
     Dates: start: 20220519
  7. INFLECTRA [Suspect]
     Active Substance: INFLIXIMAB-DYYB
     Dosage: 400 MG, Q 0,2 AND 6 WEEKS, THEN EVERY 8 WEEKS.
     Route: 042
     Dates: start: 20220731
  8. INFLECTRA [Suspect]
     Active Substance: INFLIXIMAB-DYYB
     Dosage: 400 MG, Q 0,2 AND 6 WEEKS, THEN EVERY 8 WEEKS.
     Route: 042
     Dates: start: 20220731
  9. INFLECTRA [Suspect]
     Active Substance: INFLIXIMAB-DYYB
     Dosage: 400 MG, Q 0,2 AND 6 WEEKS, THEN EVERY 8 WEEKS.
     Route: 042
     Dates: start: 20221003
  10. INFLECTRA [Suspect]
     Active Substance: INFLIXIMAB-DYYB
     Dosage: 400 MG, Q 0,2 AND 6 WEEKS, THEN EVERY 8 WEEKS.
     Route: 042
     Dates: start: 20221003
  11. INFLECTRA [Suspect]
     Active Substance: INFLIXIMAB-DYYB
     Dosage: 5 MG/KG, REINDUCTION W0,2,6 THEN Q4 WEEKS
     Route: 042
     Dates: start: 20221125, end: 20221125
  12. INFLECTRA [Suspect]
     Active Substance: INFLIXIMAB-DYYB
     Dosage: 5 MG/KG Q 0,2 AND 6 WEEKS, THEN EVERY 4 WEEKS
     Route: 042
     Dates: start: 20221125
  13. INFLECTRA [Suspect]
     Active Substance: INFLIXIMAB-DYYB
     Dosage: 5 MG/KG Q 0,2 AND 6 WEEKS, THEN EVERY 4 WEEKS
     Route: 042
     Dates: start: 20221209
  14. INFLECTRA [Suspect]
     Active Substance: INFLIXIMAB-DYYB
     Dosage: 400 MG, REINDUCTION W2,6 THEN Q4 WEEKS
     Route: 042
     Dates: start: 20221209
  15. INFLECTRA [Suspect]
     Active Substance: INFLIXIMAB-DYYB
     Dosage: 5 MG/KG Q 0,2 AND 6 WEEKS, THEN EVERY 4 WEEKS
     Route: 042
     Dates: start: 20221209
  16. INFLECTRA [Suspect]
     Active Substance: INFLIXIMAB-DYYB
     Dosage: 5 MG/KG Q 0,2 AND 6 WEEKS, THEN EVERY 4 WEEKS
     Route: 042
     Dates: start: 20221209
  17. INFLECTRA [Suspect]
     Active Substance: INFLIXIMAB-DYYB
     Dosage: 400 MG, REINDUCTION W2,6 THEN Q4 WEEKS
     Route: 042
     Dates: start: 20230204
  18. INFLECTRA [Suspect]
     Active Substance: INFLIXIMAB-DYYB
     Dosage: 400 MG, REINDUCTION W2,6 THEN Q4 WEEKS
     Route: 042
     Dates: start: 20230204
  19. INFLECTRA [Suspect]
     Active Substance: INFLIXIMAB-DYYB
     Dosage: 400 MG AFTER 6 WEEKS
     Route: 042
     Dates: start: 20230318
  20. METHOTREXATE [Concomitant]
     Active Substance: METHOTREXATE
     Dosage: 25 MG, WEEKLY
     Route: 065
     Dates: start: 202106
  21. METHOTREXATE [Concomitant]
     Active Substance: METHOTREXATE
     Dosage: 25 MG, WEEKLY
     Route: 065

REACTIONS (20)
  - Anal abscess [Not Recovered/Not Resolved]
  - Loss of personal independence in daily activities [Not Recovered/Not Resolved]
  - Fistula [Recovering/Resolving]
  - Off label use [Unknown]
  - Off label use [Unknown]
  - Intentional product use issue [Unknown]
  - Inappropriate schedule of product administration [Unknown]
  - Abscess [Unknown]
  - Arthralgia [Unknown]
  - Blood pressure decreased [Recovered/Resolved]
  - Fatigue [Recovered/Resolved]
  - Fistula discharge [Not Recovered/Not Resolved]
  - Heart rate decreased [Recovered/Resolved]
  - Inflammation [Unknown]
  - Pouchitis [Unknown]
  - Pain [Unknown]
  - Skin fissures [Unknown]
  - Ulcer [Unknown]
  - Condition aggravated [Recovering/Resolving]
  - C-reactive protein increased [Unknown]

NARRATIVE: CASE EVENT DATE: 20210101
